FAERS Safety Report 18178437 (Version 2)
Quarter: 2020Q4

REPORT INFORMATION
  Report Type: Report from Study
  Country: US (occurrence: US)
  Receive Date: 20200820
  Receipt Date: 20201016
  Transmission Date: 20210113
  Serious: No
  Sender: FDA-Public Use
  Company Number: NVSC2020US229787

PATIENT
  Sex: Male

DRUGS (1)
  1. COSENTYX [Suspect]
     Active Substance: SECUKINUMAB
     Indication: PSORIASIS
     Dosage: 300 MG, QMO (BENEATH THE SKIN, USUALLY VIA INJECTION)
     Route: 058
     Dates: start: 202005

REACTIONS (1)
  - Rash macular [Unknown]
